FAERS Safety Report 24639803 (Version 1)
Quarter: 2024Q4

REPORT INFORMATION
  Report Type: Spontaneous
  Country: US (occurrence: US)
  Receive Date: 20241120
  Receipt Date: 20241120
  Transmission Date: 20250115
  Serious: Yes (Other)
  Sender: AUROBINDO
  Company Number: US-MLMSERVICE-20241030-PI244285-00030-2

PATIENT
  Age: 57 Year
  Sex: Male

DRUGS (5)
  1. ACETAMINOPHEN [Suspect]
     Active Substance: ACETAMINOPHEN
     Indication: Musculoskeletal pain
     Dosage: UNK
     Route: 065
  2. CELECOXIB [Suspect]
     Active Substance: CELECOXIB
     Indication: Musculoskeletal pain
     Dosage: UNK
     Route: 065
  3. IBUPROFEN [Suspect]
     Active Substance: IBUPROFEN
     Indication: Musculoskeletal pain
     Dosage: 200 MILLIGRAM
     Route: 065
  4. IBUPROFEN [Suspect]
     Active Substance: IBUPROFEN
     Dosage: 400 MILLIGRAM
     Route: 065
  5. ASPIRIN [Suspect]
     Active Substance: ASPIRIN
     Indication: Musculoskeletal pain
     Dosage: 81 MILLIGRAM
     Route: 065

REACTIONS (5)
  - NSAID exacerbated respiratory disease [Recovered/Resolved]
  - Drug intolerance [Recovered/Resolved]
  - Chest discomfort [Recovered/Resolved]
  - Wheezing [Recovered/Resolved]
  - Drug ineffective [Recovered/Resolved]
